FAERS Safety Report 9059419 (Version 4)
Quarter: 2013Q2

REPORT INFORMATION
  Report Type: Report from Study
  Country: DE (occurrence: DE)
  Receive Date: 20130211
  Receipt Date: 20130605
  Transmission Date: 20140414
  Serious: Yes (Hospitalization)
  Sender: FDA-Public Use
  Company Number: DE-ABBOTT-13P-062-1048368-00

PATIENT
  Age: 82 Year
  Sex: Male

DRUGS (1)
  1. TRENANTONE [Suspect]
     Indication: PROSTATE CANCER
     Route: 058
     Dates: start: 20111012

REACTIONS (6)
  - Disease progression [Unknown]
  - Anaemia [Unknown]
  - Renal failure [Unknown]
  - Haematuria [Unknown]
  - Haematuria [Unknown]
  - Osteoporosis [Unknown]
